FAERS Safety Report 23822534 (Version 1)
Quarter: 2024Q2

REPORT INFORMATION
  Report Type: Spontaneous
  Country: AU (occurrence: AU)
  Receive Date: 20240506
  Receipt Date: 20240506
  Transmission Date: 20240716
  Serious: Yes (Other)
  Sender: FDA-Public Use
  Company Number: AU-GE HEALTHCARE-2024CSU004615

PATIENT
  Age: 44 Year
  Sex: Female
  Weight: 70 kg

DRUGS (1)
  1. OMNIPAQUE [Suspect]
     Active Substance: IOHEXOL
     Indication: Computerised tomogram
     Dosage: UNK, TOTAL
     Route: 065
     Dates: start: 20240429, end: 20240429

REACTIONS (6)
  - Sneezing [Unknown]
  - Chest discomfort [Unknown]
  - Blood pressure decreased [Unknown]
  - Swelling [Unknown]
  - Dizziness [Unknown]
  - Throat irritation [Unknown]

NARRATIVE: CASE EVENT DATE: 20240429
